FAERS Safety Report 23231097 (Version 1)
Quarter: 2023Q4

REPORT INFORMATION
  Report Type: Spontaneous
  Country: FR (occurrence: FR)
  Receive Date: 20231127
  Receipt Date: 20231127
  Transmission Date: 20240110
  Serious: Yes (Hospitalization)
  Sender: FDA-Public Use
  Company Number: FR-SUN PHARMACEUTICAL INDUSTRIES LTD-2023RR-419923

PATIENT
  Age: 18 Year
  Sex: Male

DRUGS (3)
  1. PREGABALIN [Suspect]
     Active Substance: PREGABALIN
     Indication: Product used for unknown indication
     Dosage: QUANTITY UNKNOWN
     Route: 048
     Dates: start: 202307, end: 202307
  2. ALPRAZOLAM [Suspect]
     Active Substance: ALPRAZOLAM
     Indication: Product used for unknown indication
     Dosage: QUANTITY UNKNOWN
     Route: 048
     Dates: start: 202307, end: 202307
  3. CANNABIS SATIVA SUBSP. INDICA TOP [Suspect]
     Active Substance: CANNABIS SATIVA SUBSP. INDICA TOP
     Indication: Product used for unknown indication
     Dosage: NO BETTER SPECIFIED THAN DAILY AND IMPORTANT FOR 1 YEAR
     Route: 055
     Dates: end: 202306

REACTIONS (4)
  - Psychiatric decompensation [Recovered/Resolved]
  - Drug dependence [Unknown]
  - Intentional product misuse [Recovered/Resolved]
  - Urinary retention [Recovered/Resolved]

NARRATIVE: CASE EVENT DATE: 20230701
